FAERS Safety Report 12249774 (Version 2)
Quarter: 2016Q2

REPORT INFORMATION
  Report Type: Report from Study
  Country: BR (occurrence: BR)
  Receive Date: 20160408
  Receipt Date: 20160408
  Transmission Date: 20160815
  Serious: Yes (Other)
  Sender: FDA-Public Use
  Company Number: PHHY2016BR044993

PATIENT
  Sex: Female
  Weight: 70 kg

DRUGS (13)
  1. EXELON PATCH [Suspect]
     Active Substance: RIVASTIGMINE
     Dosage: PATCH 15 CM2
     Route: 062
  2. EXELON PATCH [Suspect]
     Active Substance: RIVASTIGMINE
     Dosage: PATCH 10 CM2
     Route: 062
  3. EXELON [Suspect]
     Active Substance: RIVASTIGMINE TARTRATE
     Dosage: 4.5 MG, UNK
     Route: 048
  4. EXELON PATCH [Suspect]
     Active Substance: RIVASTIGMINE
     Indication: DEMENTIA ALZHEIMER^S TYPE
     Dosage: PATCH 5 CM2
     Route: 062
  5. RISPERIDONE. [Suspect]
     Active Substance: RISPERIDONE
     Indication: PSYCHOTIC DISORDER
  6. RISPERIDONE. [Suspect]
     Active Substance: RISPERIDONE
     Indication: SLEEP DISORDER
  7. MEMANTINE HYDROCHLORIDE. [Concomitant]
     Active Substance: MEMANTINE HYDROCHLORIDE
     Indication: PRODUCT USED FOR UNKNOWN INDICATION
     Route: 065
  8. RISPERIDONE. [Suspect]
     Active Substance: RISPERIDONE
     Indication: ABNORMAL BEHAVIOUR
     Dosage: 1 MG, QHS
     Route: 048
  9. EXELON [Suspect]
     Active Substance: RIVASTIGMINE TARTRATE
     Indication: DEMENTIA ALZHEIMER^S TYPE
     Dosage: 3 MG, QD
     Route: 048
     Dates: start: 2005
  10. RISPERIDONE. [Suspect]
     Active Substance: RISPERIDONE
     Indication: DEMENTIA
  11. EXELON PATCH [Suspect]
     Active Substance: RIVASTIGMINE
     Dosage: PATCH 10 CM2
     Route: 062
  12. EXELON [Suspect]
     Active Substance: RIVASTIGMINE TARTRATE
     Dosage: 6 MG, UNK
     Route: 048
  13. EXELON [Suspect]
     Active Substance: RIVASTIGMINE TARTRATE
     Indication: DEMENTIA ALZHEIMER^S TYPE
     Route: 048

REACTIONS (16)
  - Seizure [Unknown]
  - Memory impairment [Unknown]
  - Gait disturbance [Unknown]
  - Aggression [Unknown]
  - Hypotonia [Unknown]
  - Abnormal behaviour [Unknown]
  - Crying [Unknown]
  - Diarrhoea [Unknown]
  - Aphasia [Unknown]
  - Fall [Unknown]
  - Skin discolouration [Unknown]
  - Vomiting [Unknown]
  - Femur fracture [Unknown]
  - Agitation [Unknown]
  - Hypokinesia [Unknown]
  - Dementia Alzheimer^s type [Unknown]
